FAERS Safety Report 9552664 (Version 1)
Quarter: 2013Q2

REPORT INFORMATION
  Report Type: Spontaneous
  Country: US (occurrence: None)
  Receive Date: 20130606
  Receipt Date: 20130606
  Transmission Date: 20140414
  Serious: No
  Sender: FDA-Public Use
  Company Number: 2013PROUSA02223

PATIENT
  Age: 78 Year
  Sex: Male
  Weight: 73.5 kg

DRUGS (3)
  1. PROVENGE [Suspect]
     Indication: PROSTATE CANCER METASTATIC
     Dosage: 250 ML, SINGLE , INTRAVENOUS
     Route: 042
     Dates: start: 20121005, end: 20121005
  2. FINASTERIDE (FINASTERIDE) [Concomitant]
  3. TAMSULOSIN (TAMSULOSIN) [Concomitant]

REACTIONS (1)
  - Back pain [None]
